FAERS Safety Report 8877695 (Version 2)
Quarter: 2013Q1

REPORT INFORMATION
  Report Type: Spontaneous
  Country: BR (occurrence: BR)
  Receive Date: 20121024
  Receipt Date: 20130319
  Transmission Date: 20140127
  Serious: No
  Sender: FDA-Public Use
  Company Number: PHHY2012BR094326

PATIENT
  Age: 31 Year
  Sex: Male
  Weight: 75 kg

DRUGS (2)
  1. TEGRETOL [Suspect]
     Indication: CONVULSION
     Dosage: 400 MG, UNK
     Route: 048
     Dates: end: 201206
  2. TEGRETOL CR [Suspect]
     Indication: CONVULSION
     Dosage: 2 DF(400MG), A DAY
     Route: 048
     Dates: start: 201206

REACTIONS (3)
  - Convulsion [Not Recovered/Not Resolved]
  - Chills [Recovering/Resolving]
  - Feeling cold [Recovering/Resolving]
